FAERS Safety Report 12827043 (Version 1)
Quarter: 2016Q4

REPORT INFORMATION
  Report Type: Spontaneous
  Country: FR (occurrence: FR)
  Receive Date: 20161006
  Receipt Date: 20161006
  Transmission Date: 20170207
  Serious: Yes (Hospitalization)
  Sender: FDA-Public Use
  Company Number: FR-ASTRAZENECA-2016SF05197

PATIENT
  Age: 29721 Day
  Sex: Male

DRUGS (11)
  1. MERONEM [Suspect]
     Active Substance: MEROPENEM
     Indication: ANTIBIOTIC THERAPY
     Route: 042
     Dates: start: 20160725, end: 20160801
  2. GENTAMICINE [Concomitant]
     Active Substance: GENTAMICIN
     Route: 040
     Dates: start: 20160710, end: 20160712
  3. TAVANIC [Suspect]
     Active Substance: LEVOFLOXACIN
     Indication: ANTIBIOTIC THERAPY
     Route: 040
     Dates: start: 20160725, end: 20160801
  4. TAHOR [Concomitant]
     Active Substance: ATORVASTATIN CALCIUM
     Route: 048
     Dates: start: 20160624
  5. KARDEGIC [Concomitant]
     Active Substance: ASPIRIN LYSINE
     Route: 048
     Dates: start: 20160624
  6. ORBENINE [Suspect]
     Active Substance: CLOXACILLIN SODIUM
     Route: 048
     Dates: start: 20160703, end: 20160705
  7. SPIRIVA [Concomitant]
     Active Substance: TIOTROPIUM BROMIDE MONOHYDRATE
     Route: 055
  8. ROCEPHINE [Concomitant]
     Active Substance: CEFTRIAXONE SODIUM
     Route: 040
     Dates: start: 20160710, end: 20160725
  9. BACTRIM [Concomitant]
     Active Substance: SULFAMETHOXAZOLE\TRIMETHOPRIM
     Route: 040
     Dates: start: 20160710, end: 20160712
  10. PLAVIX [Suspect]
     Active Substance: CLOPIDOGREL BISULFATE
     Route: 048
     Dates: start: 20160624, end: 20160804
  11. OXYGEN THERAPY [Concomitant]
     Active Substance: OXYGEN

REACTIONS (3)
  - Eosinophilia [Recovered/Resolved]
  - Rash erythematous [Recovered/Resolved]
  - Hyperthermia [Recovered/Resolved]

NARRATIVE: CASE EVENT DATE: 20160705
